FAERS Safety Report 16912317 (Version 3)
Quarter: 2019Q4

REPORT INFORMATION
  Report Type: Spontaneous
  Country: US (occurrence: US)
  Receive Date: 20191014
  Receipt Date: 20191127
  Transmission Date: 20200122
  Serious: Yes (Other)
  Sender: FDA-Public Use
  Company Number: US-AMGEN-USASP2019164307

PATIENT
  Age: 85 Year
  Sex: Female

DRUGS (3)
  1. IRON [Concomitant]
     Active Substance: IRON
  2. VITAMIN E [Concomitant]
     Active Substance: .ALPHA.-TOCOPHEROL
  3. PROLIA [Suspect]
     Active Substance: DENOSUMAB
     Indication: OSTEOPOROSIS POSTMENOPAUSAL
     Dosage: 60 MILLIGRAM, Q6MO
     Route: 065

REACTIONS (9)
  - Bursitis [Unknown]
  - Heart valve replacement [Unknown]
  - Wrong technique in product usage process [Unknown]
  - Fall [Unknown]
  - Limb injury [Unknown]
  - Concussion [Unknown]
  - Hiatus hernia [Unknown]
  - Eye contusion [Unknown]
  - Head injury [Unknown]

NARRATIVE: CASE EVENT DATE: 201805
